FAERS Safety Report 5872074-2 (Version None)
Quarter: 2008Q3

REPORT INFORMATION
  Report Type: 
  Country: None (occurrence: None)
  Receive Date: 20080905
  Receipt Date: 20080829
  Transmission Date: 20090109
  Serious: Yes (Hospitalization)
  Sender: FDA-Public Use
  Company Number: A0730282A

PATIENT
  Age: 50 Year
  Sex: Male
  Weight: 90.9 kg

DRUGS (11)
  1. AVANDIA [Suspect]
     Indication: TYPE 2 DIABETES MELLITUS
     Dosage: 8MG PER DAY
     Route: 048
     Dates: start: 20020101, end: 20070605
  2. METHADONE HCL [Concomitant]
     Dosage: 80MG PER DAY
     Route: 048
  3. MULTI-VITAMIN [Concomitant]
  4. THEOPHYLLINE [Concomitant]
     Dosage: 300MG TWICE PER DAY
     Route: 048
  5. ASPIRIN [Concomitant]
  6. LIPITOR [Concomitant]
     Dosage: 40MG PER DAY
     Route: 048
  7. METFORMIN HCL [Concomitant]
     Dosage: 500MG TWICE PER DAY
     Route: 048
  8. LOPRESSOR [Concomitant]
     Dosage: 25MG TWICE PER DAY
     Route: 048
  9. NITROGLYCERIN [Concomitant]
     Dosage: .4MG AS REQUIRED
  10. FOSINOPRIL SODIUM [Concomitant]
  11. FAMOTIDINE [Concomitant]

REACTIONS (3)
  - CORONARY ARTERY DISEASE [None]
  - FATIGUE [None]
  - MYOCARDIAL INFARCTION [None]
